FAERS Safety Report 4979781-4 (Version None)
Quarter: 2006Q2

REPORT INFORMATION
  Report Type: 
  Country: None (occurrence: None)
  Receive Date: 20060421
  Receipt Date: 20060413
  Transmission Date: 20061013
  Serious: Yes (Other)
  Sender: FDA-Public Use
  Company Number: US-ABBOTT-06P-163-0330659-00

PATIENT
  Sex: Female

DRUGS (8)
  1. DEPAKOTE [Suspect]
     Indication: BIPOLAR I DISORDER
  2. LITHIUM CARBONATE [Suspect]
     Indication: BIPOLAR I DISORDER
     Route: 048
  3. LITHIUM [Suspect]
     Indication: BIPOLAR I DISORDER
  4. ^LITHIUM CR^ [Suspect]
     Indication: BIPOLAR I DISORDER
  5. VENLAFAXINE HCL [Concomitant]
     Indication: DRUG USE FOR UNKNOWN INDICATION
  6. VITAMIN B COMPLEX CAP [Concomitant]
     Indication: DRUG USE FOR UNKNOWN INDICATION
  7. YASMIN [Concomitant]
     Indication: DRUG USE FOR UNKNOWN INDICATION
  8. ACNE MEDICATION [Concomitant]
     Indication: DRUG USE FOR UNKNOWN INDICATION

REACTIONS (3)
  - ANXIETY [None]
  - PANIC ATTACK [None]
  - SUICIDAL IDEATION [None]
